FAERS Safety Report 9425905 (Version 1)
Quarter: 2013Q3

REPORT INFORMATION
  Report Type: Spontaneous
  Country: DK (occurrence: DK)
  Receive Date: 20130729
  Receipt Date: 20130729
  Transmission Date: 20140515
  Serious: Yes (Hospitalization)
  Sender: FDA-Public Use
  Company Number: DK-B.I. PHARMACEUTICALS,INC./RIDGEFIELD-2013-SW-00374DB

PATIENT
  Age: 66 Year
  Sex: Male
  Weight: 100.5 kg

DRUGS (2)
  1. PRADAXA [Suspect]
     Indication: CARDIAC FAILURE
     Dates: start: 20121011, end: 20130120
  2. BLINDED STUDY MEDICATION [Concomitant]
     Indication: CARDIAC FAILURE CHRONIC
     Dates: start: 20121011

REACTIONS (1)
  - Anaemia [Not Recovered/Not Resolved]
